FAERS Safety Report 5020970-0 (Version None)
Quarter: 2006Q2

REPORT INFORMATION
  Report Type: 
  Country: None (occurrence: None)
  Receive Date: 20060602
  Receipt Date: 20060522
  Transmission Date: 20061013
  Serious: Yes (Other)
  Sender: FDA-Public Use
  Company Number: 225425

PATIENT
  Sex: Female
  Weight: 35.2 kg

DRUGS (5)
  1. NUTROPIN AQ [Suspect]
     Indication: CHROMOSOME ABNORMALITY
     Dosage: 0.95 MG, 7/WEEK, UNK
     Dates: start: 20010720
  2. COUMADIN [Concomitant]
  3. DIGOXIN [Concomitant]
  4. DIOVAN [Concomitant]
  5. LASIX [Concomitant]

REACTIONS (2)
  - HEPATOMEGALY [None]
  - LYMPHADENITIS [None]
